FAERS Safety Report 5927121-6 (Version None)
Quarter: 2008Q4

REPORT INFORMATION
  Report Type: 
  Country: None (occurrence: None)
  Receive Date: 20081022
  Receipt Date: 20081009
  Transmission Date: 20090506
  Serious: Yes (Hospitalization)
  Sender: FDA-Public Use
  Company Number: US-AMGEN-US310118

PATIENT
  Sex: Female

DRUGS (9)
  1. ENBREL [Suspect]
     Indication: RHEUMATOID ARTHRITIS
     Route: 058
     Dates: start: 20021104
  2. PLAQUENIL [Concomitant]
     Dates: start: 19980301
  3. METHOTREXATE [Concomitant]
     Dates: start: 20030101
  4. PREVACID [Concomitant]
  5. UNSPECIFIED STEROIDS [Concomitant]
  6. ORENCIA [Concomitant]
     Dates: start: 20060331
  7. DARVOCET-N 100 [Concomitant]
  8. PHENERGAN HCL [Concomitant]
  9. PRILOSEC [Concomitant]

REACTIONS (1)
  - HERNIA [None]
